FAERS Safety Report 16384386 (Version 1)
Quarter: 2019Q2

REPORT INFORMATION
  Report Type: Spontaneous
  Country: KR (occurrence: KR)
  Receive Date: 20190603
  Receipt Date: 20190603
  Transmission Date: 20190711
  Serious: Yes (Other)
  Sender: FDA-Public Use
  Company Number: KR-JUBILANT CADISTA PHARMACEUTICALS-2019JUB00207

PATIENT
  Age: 76 Year
  Sex: Female

DRUGS (2)
  1. DONEPEZIL. [Suspect]
     Active Substance: DONEPEZIL
     Indication: DEMENTIA ALZHEIMER^S TYPE
     Dosage: 10 MG, EVERY 48 HOURS
     Route: 065
  2. DONEPEZIL. [Suspect]
     Active Substance: DONEPEZIL
     Dosage: 23 MG, EVERY 48 HOURS
     Route: 065

REACTIONS (2)
  - Dizziness [Unknown]
  - Facial bones fracture [Unknown]
